FAERS Safety Report 9936302 (Version 1)
Quarter: 2014Q1

REPORT INFORMATION
  Report Type: Spontaneous
  Country: US (occurrence: US)
  Receive Date: 20140228
  Receipt Date: 20140228
  Transmission Date: 20141002
  Serious: No
  Sender: FDA-Public Use
  Company Number: US-AMGEN-USASP2014001994

PATIENT
  Age: 54 Year
  Sex: Female
  Weight: 68.93 kg

DRUGS (8)
  1. ENBREL [Suspect]
     Indication: PRODUCT USED FOR UNKNOWN INDICATION
     Dosage: 50 MG, 2 TIMES/WK
     Route: 058
  2. XANAX [Concomitant]
     Dosage: 0.5 MG, UNK
     Route: 048
  3. SYNTHROID [Concomitant]
     Dosage: 100 MUG, UNK
     Route: 048
  4. OXYMORPHONE [Concomitant]
     Dosage: 10 MG, UNK
     Route: 048
  5. TRIAMCINOLON                       /00031901/ [Concomitant]
     Dosage: 0.025%
  6. OXYCODONE [Concomitant]
     Dosage: 5 MG, UNK
     Route: 048
  7. VITAMIN D                          /00107901/ [Concomitant]
     Dosage: 2000 UNIT, UNK
     Route: 048
  8. TRIAMTEREEN/HYDROCHLOORTHIAZIDE [Concomitant]
     Dosage: 25-50MG
     Route: 048

REACTIONS (4)
  - Pruritus [Unknown]
  - Skin atrophy [Unknown]
  - Contusion [Unknown]
  - Skin haemorrhage [Unknown]
